FAERS Safety Report 9057574 (Version 1)
Quarter: 2013Q1

REPORT INFORMATION
  Report Type: Spontaneous
  Country: US (occurrence: None)
  Receive Date: 20130204
  Receipt Date: 20130204
  Transmission Date: 20140127
  Serious: Yes (Hospitalization)
  Sender: FDA-Public Use
  Company Number: None

PATIENT
  Age: 69 Year
  Sex: Male
  Weight: 90 kg

DRUGS (14)
  1. COUMADIN [Suspect]
     Indication: ATRIAL FIBRILLATION
     Dosage: CHRONIC
     Route: 048
  2. PROSCAR [Concomitant]
  3. KCL [Concomitant]
  4. ECASE [Concomitant]
  5. ALLOPURINOL [Concomitant]
  6. MVI [Concomitant]
  7. AMIODARONE [Concomitant]
  8. CEROVITE [Concomitant]
  9. LANOXIN [Concomitant]
  10. MAG OX [Concomitant]
  11. SENNA PLUS [Concomitant]
  12. LACTULOSE [Concomitant]
  13. NORCO [Concomitant]
  14. COREG [Concomitant]

REACTIONS (6)
  - Contusion [None]
  - Skeletal injury [None]
  - Fall [None]
  - Hypercoagulation [None]
  - International normalised ratio increased [None]
  - Pain [None]
